FAERS Safety Report 8387402-6 (Version None)
Quarter: 2012Q2

REPORT INFORMATION
  Report Type: 
  Country: None (occurrence: None)
  Receive Date: 20120525
  Receipt Date: 20120518
  Transmission Date: 20120825
  Serious: Yes (Death, Hospitalization)
  Sender: FDA-Public Use
  Company Number: US-BAXTER-2012BAX005958

PATIENT
  Sex: Male

DRUGS (2)
  1. DIANEAL [Suspect]
     Indication: PERITONEAL DIALYSIS
     Route: 033
     Dates: end: 20120511
  2. DIANEAL [Suspect]
     Route: 033
     Dates: end: 20120511

REACTIONS (2)
  - NEUROENDOCRINE TUMOUR [None]
  - DISORIENTATION [None]
